FAERS Safety Report 10787602 (Version 4)
Quarter: 2015Q2

REPORT INFORMATION
  Report Type: Report from Study
  Country: DE (occurrence: DE)
  Receive Date: 20150212
  Receipt Date: 20150401
  Transmission Date: 20150821
  Serious: Yes (Other)
  Sender: FDA-Public Use
  Company Number: DE-BEH-2014045377

PATIENT
  Age: 73 Year
  Sex: Male
  Weight: 120 kg

DRUGS (10)
  1. PRIVIGEN [Suspect]
     Active Substance: HUMAN IMMUNOGLOBULIN G
     Dosage: INFUSION RATE MIN. 1.25 - MAX. 9 ML/MIN
     Route: 042
     Dates: start: 20140729, end: 20140729
  2. PRIVIGEN [Suspect]
     Active Substance: HUMAN IMMUNOGLOBULIN G
     Dosage: INFUSION RATE MIN. 1.25 - MAX. 9 ML/MIN
     Route: 042
     Dates: start: 20141117, end: 20141117
  3. PRIVIGEN [Suspect]
     Active Substance: HUMAN IMMUNOGLOBULIN G
     Indication: SECONDARY IMMUNODEFICIENCY
     Dosage: INFUSION RATE MIN. 1.25 - MAX. 9 ML/MIN
     Route: 042
     Dates: start: 20140922, end: 20140922
  4. PRIVIGEN [Suspect]
     Active Substance: HUMAN IMMUNOGLOBULIN G
     Indication: CHRONIC LYMPHOCYTIC LEUKAEMIA
     Dosage: INFUSION RATE MIN. 1.25 - MAX. 9 ML/MIN
     Route: 042
     Dates: start: 20141215, end: 20141215
  5. GABAPENTIN. [Concomitant]
     Active Substance: GABAPENTIN
  6. PRIVIGEN [Suspect]
     Active Substance: HUMAN IMMUNOGLOBULIN G
     Dates: start: 20130829, end: 20140701
  7. PRIVIGEN [Suspect]
     Active Substance: HUMAN IMMUNOGLOBULIN G
     Dosage: INFUSION RATE MIN. 1.25 - MAX. 9 ML/MIN; INTRAVENOUS VIA PORT
     Dates: start: 20140826, end: 20140826
  8. SIOFOR [Concomitant]
     Active Substance: METFORMIN HYDROCHLORIDE
     Dosage: START DATE: ??-???-2007
     Route: 048
  9. PRIVIGEN [Suspect]
     Active Substance: HUMAN IMMUNOGLOBULIN G
     Indication: INFECTION
     Dosage: INFUSION RATE MIN. 1.25 - MAX. 9 ML/MIN
     Route: 042
     Dates: start: 20141020, end: 20141020
  10. INSULIN [Concomitant]
     Active Substance: INSULIN NOS

REACTIONS (7)
  - Bursitis [Recovered/Resolved]
  - Soft tissue inflammation [Recovered/Resolved]
  - Pain in extremity [Recovered/Resolved]
  - Venous thrombosis limb [Recovered/Resolved]
  - Lymphadenopathy [Recovered/Resolved]
  - Bronchitis [Recovered/Resolved]
  - Soft tissue infection [Recovered/Resolved]

NARRATIVE: CASE EVENT DATE: 20140711
